FAERS Safety Report 20461076 (Version 1)
Quarter: 2022Q1

REPORT INFORMATION
  Report Type: Spontaneous
  Country: US (occurrence: None)
  Receive Date: 20220211
  Receipt Date: 20220211
  Transmission Date: 20220424
  Serious: Yes (Hospitalization, Other)
  Sender: FDA-Public Use
  Company Number: US-ROCHE-3014990

PATIENT
  Sex: Female

DRUGS (2)
  1. RITUXAN [Suspect]
     Active Substance: RITUXIMAB
     Indication: Non-Hodgkin^s lymphoma
     Route: 065
     Dates: start: 2002
  2. BENDAMUSTINE [Concomitant]
     Active Substance: BENDAMUSTINE

REACTIONS (3)
  - Splenomegaly [Recovered/Resolved]
  - Splenectomy [Recovered/Resolved]
  - Non-Hodgkin^s lymphoma recurrent [Recovered/Resolved]

NARRATIVE: CASE EVENT DATE: 20100101
